FAERS Safety Report 9519725 (Version 1)
Quarter: 2013Q1

REPORT INFORMATION
  Report Type: Spontaneous
  Country: US (occurrence: None)
  Receive Date: 20130305
  Receipt Date: 20130305
  Transmission Date: 20140127
  Serious: Yes (Hospitalization)
  Sender: FDA-Public Use
  Company Number: 163-21880-12010937

PATIENT
  Age: 80 Year
  Sex: Female
  Weight: 69.85 kg

DRUGS (1)
  1. REVLIMID [Suspect]
     Indication: PLASMA CELL MYELOMA
     Dosage: 20 MG, DAILY FOR 21 DAYS 7 DAYS OFF, PO
     Route: 048
     Dates: start: 20110209

REACTIONS (2)
  - Dehydration [None]
  - Bronchitis [None]
